FAERS Safety Report 7381241-0 (Version None)
Quarter: 2011Q1

REPORT INFORMATION
  Report Type: 
  Country: None (occurrence: None)
  Receive Date: 20110321
  Receipt Date: 20110307
  Transmission Date: 20110831
  Serious: Yes (Disabling, Other)
  Sender: FDA-Public Use
  Company Number: 2011MA002125

PATIENT
  Sex: Female

DRUGS (1)
  1. METOCLOPRAMIDE TABLETS USP, 10 MG (PUREPAC) [Suspect]
     Dates: start: 20021001, end: 20090901

REACTIONS (8)
  - EXTRAPYRAMIDAL DISORDER [None]
  - TARDIVE DYSKINESIA [None]
  - UNEVALUABLE EVENT [None]
  - DEFORMITY [None]
  - MULTIPLE INJURIES [None]
  - PAIN [None]
  - ECONOMIC PROBLEM [None]
  - NERVOUS SYSTEM DISORDER [None]
